FAERS Safety Report 17889168 (Version 1)
Quarter: 2020Q2

REPORT INFORMATION
  Report Type: Report from Study
  Country: CL (occurrence: CL)
  Receive Date: 20200612
  Receipt Date: 20200612
  Transmission Date: 20200714
  Serious: Yes (Life-Threatening)
  Sender: FDA-Public Use
  Company Number: NVSC2020CL163964

PATIENT
  Age: 13 Year
  Sex: Male
  Weight: 31 kg

DRUGS (2)
  1. OMNITROPE [Suspect]
     Active Substance: SOMATROPIN
     Indication: HYPOTHYROIDISM
  2. OMNITROPE [Suspect]
     Active Substance: SOMATROPIN
     Indication: GROWTH HORMONE DEFICIENCY
     Dosage: 1 DF (1 MG/10 ML), QD
     Route: 058
     Dates: start: 20200403, end: 20200409

REACTIONS (1)
  - Medulloblastoma recurrent [Not Recovered/Not Resolved]

NARRATIVE: CASE EVENT DATE: 20200409
